FAERS Safety Report 9351273 (Version 2)
Quarter: 2013Q3

REPORT INFORMATION
  Report Type: Spontaneous
  Country: US (occurrence: US)
  Receive Date: 20130617
  Receipt Date: 20130712
  Transmission Date: 20140515
  Serious: Yes (Other)
  Sender: FDA-Public Use
  Company Number: US-PFIZER INC-2013177838

PATIENT
  Sex: Male

DRUGS (1)
  1. EPIPEN [Suspect]
     Dosage: UNK

REACTIONS (4)
  - Drug administration error [Unknown]
  - Pain [Unknown]
  - Local swelling [Unknown]
  - Gait disturbance [Unknown]
